FAERS Safety Report 9171074 (Version 3)
Quarter: 2013Q3

REPORT INFORMATION
  Report Type: Spontaneous
  Country: HR (occurrence: HR)
  Receive Date: 20130319
  Receipt Date: 20130709
  Transmission Date: 20140515
  Serious: Yes (Other)
  Sender: FDA-Public Use
  Company Number: PHHY2013HR025782

PATIENT
  Age: 26 Year
  Sex: Female

DRUGS (2)
  1. CARBAMAZEPINE [Suspect]
     Indication: EPILEPSY
     Dosage: 800 MG, DAILY
  2. ETHINYLESTRADIOL+GESTODENE [Interacting]
     Indication: CONTRACEPTION
     Dosage: UNK UKN, UNK
     Route: 048

REACTIONS (4)
  - Ectopic pregnancy [Unknown]
  - Haematosalpinx [Unknown]
  - Pain [Unknown]
  - Drug interaction [Unknown]
